FAERS Safety Report 24773940 (Version 1)
Quarter: 2024Q4

REPORT INFORMATION
  Report Type: Spontaneous
  Country: JP (occurrence: JP)
  Receive Date: 20241225
  Receipt Date: 20241225
  Transmission Date: 20250115
  Serious: Yes (Other)
  Sender: ABBVIE
  Company Number: JP-LUNDBECK-DKLU3049355

PATIENT

DRUGS (1)
  1. LEXAPRO [Suspect]
     Active Substance: ESCITALOPRAM OXALATE
     Indication: Maternal exposure during breast feeding
     Dosage: DAILY DOSE: 10.0 MG, FORM: UNKNOWN
     Route: 063

REACTIONS (2)
  - Kawasaki^s disease [Unknown]
  - Exposure via breast milk [Unknown]
